FAERS Safety Report 15813293 (Version 5)
Quarter: 2020Q3

REPORT INFORMATION
  Report Type: Spontaneous
  Country: JP (occurrence: JP)
  Receive Date: 20190111
  Receipt Date: 20200901
  Transmission Date: 20201102
  Serious: Yes (Death, Hospitalization, Other)
  Sender: FDA-Public Use
  Company Number: JP-BRISTOL-MYERS SQUIBB COMPANY-BMS-2018-113154

PATIENT
  Age: 51 Year
  Sex: Male
  Weight: 55 kg

DRUGS (4)
  1. VOTRIENT [Concomitant]
     Active Substance: PAZOPANIB HYDROCHLORIDE
     Indication: PRODUCT USED FOR UNKNOWN INDICATION
     Dosage: UNK
     Route: 065
     Dates: start: 20180130, end: 20180508
  2. OPDIVO [Suspect]
     Active Substance: NIVOLUMAB
     Dosage: 240 MG/DAY(9/13/2018,9/27)
     Route: 041
     Dates: start: 20180913, end: 20180927
  3. OPDIVO [Suspect]
     Active Substance: NIVOLUMAB
     Indication: METASTATIC RENAL CELL CARCINOMA
     Dosage: 180 MGDAY(3/9/2017,3/28,4/11,4/25,5/9,5/23,6/6,6/20,7/4,7/18,8/1,8/15,8/29,10/24,11/7,11/21,12/5,12/
     Route: 041
     Dates: start: 20170309, end: 20180116
  4. SUTENT [Suspect]
     Active Substance: SUNITINIB MALATE
     Indication: METASTATIC RENAL CELL CARCINOMA
     Dosage: 25 MG, EVERYDAY
     Route: 065
     Dates: start: 20180514, end: 20180528

REACTIONS (4)
  - Lymphocyte count decreased [Unknown]
  - Malignant pleural effusion [Recovered/Resolved]
  - Malignant neoplasm progression [Fatal]
  - Platelet count decreased [Recovered/Resolved]

NARRATIVE: CASE EVENT DATE: 20170926
